FAERS Safety Report 9373678 (Version 1)
Quarter: 2013Q2

REPORT INFORMATION
  Report Type: Spontaneous
  Country: CN (occurrence: CN)
  Receive Date: 20130627
  Receipt Date: 20130627
  Transmission Date: 20140414
  Serious: Yes (Other)
  Sender: FDA-Public Use
  Company Number: CN-BAXTER-2013BAX024338

PATIENT
  Age: 80 Year
  Sex: Male
  Weight: 50 kg

DRUGS (3)
  1. FAT EMULSION [Suspect]
     Indication: NUTRITIONAL SUPPLEMENTATION
     Route: 042
     Dates: start: 20111008, end: 20111008
  2. HUMAN ALBUMIN 20% [Suspect]
     Indication: NUTRITIONAL SUPPLEMENTATION
     Dosage: WITH GLUCOSE
     Route: 065
  3. GLUCOSE [Suspect]
     Indication: NUTRITIONAL SUPPLEMENTATION
     Dosage: WITH HUMAN ALBUMIN
     Route: 065

REACTIONS (1)
  - Chills [Recovered/Resolved]
